FAERS Safety Report 6012660-2 (Version None)
Quarter: 2008Q4

REPORT INFORMATION
  Report Type: 
  Country: None (occurrence: None)
  Receive Date: 20081217
  Receipt Date: 20081211
  Transmission Date: 20090506
  Serious: Yes (Other)
  Sender: FDA-Public Use
  Company Number: THQ2008A01786

PATIENT
  Age: 58 Year
  Sex: Male

DRUGS (5)
  1. ACTOS [Suspect]
     Indication: DIABETES MELLITUS
     Dosage: PER ORAL
     Route: 048
     Dates: start: 20020422, end: 20041124
  2. AVANDIA (ROSIOLITAZONE MALEATE) [Concomitant]
  3. METFORMIN MIXTARD /00646001/(INSULIN HUMAN) [Concomitant]
  4. CORODIL (ENALAPRIL) [Concomitant]
  5. ZOVATOR [Concomitant]

REACTIONS (3)
  - BLINDNESS [None]
  - MACULAR OEDEMA [None]
  - MACULOPATHY [None]
